FAERS Safety Report 7232113-3 (Version None)
Quarter: 2011Q1

REPORT INFORMATION
  Report Type: 
  Country: None (occurrence: None)
  Receive Date: 20110119
  Receipt Date: 20110107
  Transmission Date: 20110831
  Serious: Yes (Hospitalization)
  Sender: FDA-Public Use
  Company Number: US-BIOGENIDEC-2010BI021353

PATIENT
  Age: 35 Year
  Sex: Female
  Weight: 90 kg

DRUGS (1)
  1. TYSABRI [Suspect]
     Indication: MULTIPLE SCLEROSIS
     Route: 042
     Dates: start: 20070301

REACTIONS (16)
  - NECK PAIN [None]
  - BACK PAIN [None]
  - URINARY TRACT INFECTION [None]
  - FIBROMYALGIA [None]
  - FEELING ABNORMAL [None]
  - JOINT CONTRACTURE [None]
  - ANKLE FRACTURE [None]
  - FALL [None]
  - VOMITING [None]
  - OVARIAN CYSTECTOMY [None]
  - UPPER LIMB FRACTURE [None]
  - ARTHRALGIA [None]
  - MUSCLE SPASMS [None]
  - MUSCLE SPASTICITY [None]
  - COGNITIVE DISORDER [None]
  - INSOMNIA [None]
